FAERS Safety Report 9852562 (Version 1)
Quarter: 2014Q1

REPORT INFORMATION
  Report Type: Spontaneous
  Country: US (occurrence: US)
  Receive Date: 20140129
  Receipt Date: 20140129
  Transmission Date: 20141002
  Serious: No
  Sender: FDA-Public Use
  Company Number: US-B.I. PHARMACEUTICALS,INC./RIDGEFIELD-2014-BI-02456BP

PATIENT
  Sex: Male

DRUGS (3)
  1. TWYNSTA [Suspect]
     Indication: HYPERTENSION
     Dosage: DOSE PER APPLICATION AND DAILY DOSE: 40 MG/ 5 MG
     Route: 048
  2. LANTUS INSULIN [Concomitant]
     Indication: DIABETES MELLITUS
     Route: 058
  3. CRESTOR [Concomitant]
     Indication: BLOOD CHOLESTEROL INCREASED
     Route: 048

REACTIONS (2)
  - Pyrexia [Recovered/Resolved]
  - Pharyngitis [Recovered/Resolved]
